FAERS Safety Report 20073044 (Version 3)
Quarter: 2022Q2

REPORT INFORMATION
  Report Type: Spontaneous
  Country: JP (occurrence: JP)
  Receive Date: 20211116
  Receipt Date: 20220518
  Transmission Date: 20220721
  Serious: Yes (Hospitalization, Other)
  Sender: FDA-Public Use
  Company Number: JP-ASTELLAS-2021JP021906

PATIENT
  Age: 6 Decade
  Sex: Male

DRUGS (22)
  1. PROGRAF [Suspect]
     Active Substance: TACROLIMUS
     Indication: Immunosuppressant drug therapy
     Dosage: UNK UNK, UNKNOWN FREQ.
     Route: 048
     Dates: start: 20191104
  2. PROGRAF [Suspect]
     Active Substance: TACROLIMUS
     Indication: Prophylaxis against transplant rejection
     Dosage: UNK UNK, UNKNOWN FREQ.
     Route: 048
  3. PROGRAF [Suspect]
     Active Substance: TACROLIMUS
     Dosage: UNK UNK, UNKNOWN FREQ.
     Route: 048
     Dates: end: 20200303
  4. MILRINONE [Concomitant]
     Active Substance: MILRINONE
     Indication: Right ventricular failure
     Dosage: 0.125 ?, UNKNOWN FREQ.
     Route: 042
     Dates: start: 20160606
  5. MILRINONE [Concomitant]
     Active Substance: MILRINONE
     Dosage: 0.23 ?, UNKNOWN FREQ.
     Route: 042
  6. SOLU-MEDROL [Concomitant]
     Active Substance: METHYLPREDNISOLONE SODIUM SUCCINATE
     Indication: Immunosuppressant drug therapy
     Dosage: UNK UNK, UNKNOWN FREQ.
     Route: 065
     Dates: start: 20191027, end: 20191118
  7. CARPERITIDE [Concomitant]
     Active Substance: CARPERITIDE
     Indication: Prophylaxis
     Dosage: UNK UNK, UNKNOWN FREQ.
     Route: 065
     Dates: start: 20191027, end: 20191119
  8. CELLCEPT [Concomitant]
     Active Substance: MYCOPHENOLATE MOFETIL
     Indication: Immunosuppressant drug therapy
     Route: 065
     Dates: start: 20191030
  9. CELLCEPT [Concomitant]
     Active Substance: MYCOPHENOLATE MOFETIL
     Indication: Prophylaxis against transplant rejection
  10. SULFAMETHOXAZOLE\TRIMETHOPRIM [Concomitant]
     Active Substance: SULFAMETHOXAZOLE\TRIMETHOPRIM
     Indication: Infection prophylaxis
     Dosage: UNK UNK, UNKNOWN FREQ.
     Route: 065
     Dates: start: 20191104, end: 20191112
  11. SULFAMETHOXAZOLE\TRIMETHOPRIM [Concomitant]
     Active Substance: SULFAMETHOXAZOLE\TRIMETHOPRIM
     Dosage: UNK UNK, UNKNOWN FREQ.
     Route: 065
     Dates: start: 20200618
  12. ROSUVASTATIN [Concomitant]
     Active Substance: ROSUVASTATIN
     Indication: Prophylaxis
     Dosage: UNK UNK, UNKNOWN FREQ.
     Route: 065
     Dates: start: 20191109
  13. PICILLIBACTA [Concomitant]
     Active Substance: AMPICILLIN SODIUM\SULBACTAM SODIUM
     Indication: Infection prophylaxis
     Dosage: 3 G/DAY, UNKNOWN FREQ.
     Route: 065
     Dates: start: 20191111, end: 20191111
  14. BASILIXIMAB [Concomitant]
     Active Substance: BASILIXIMAB
     Indication: Product used for unknown indication
     Dosage: UNK UNK, UNKNOWN FREQ.
     Route: 065
  15. DARBEPOETIN ALFA [Concomitant]
     Active Substance: DARBEPOETIN ALFA
     Indication: Prophylaxis
     Dosage: UNK UNK, UNKNOWN FREQ.
     Route: 065
     Dates: start: 20191112, end: 20200730
  16. SAMSCA [Concomitant]
     Active Substance: TOLVAPTAN
     Indication: Prophylaxis
     Dosage: 15 MG/DAY, UNKNOWN FREQ.
     Route: 065
     Dates: end: 202009
  17. LANSOPRAZOLE [Concomitant]
     Active Substance: LANSOPRAZOLE
     Indication: Prophylaxis
     Dosage: UNK UNK, UNKNOWN FREQ.
     Route: 065
  18. FUROSEMIDE [Concomitant]
     Active Substance: FUROSEMIDE
     Indication: Prophylaxis
     Dosage: 480 MG/DAY, UNKNOWN FREQ.
     Route: 042
  19. FUROSEMIDE [Concomitant]
     Active Substance: FUROSEMIDE
     Dosage: 60 MG/DAY, UNKNOWN FREQ.
     Route: 042
  20. BIFIDOBACTERIUM SPP. [Concomitant]
     Active Substance: BIFIDOBACTERIUM SPP.
     Indication: Prophylaxis
     Dosage: UNK UNK, UNKNOWN FREQ.
     Route: 065
  21. LEVOTHYROXINE [Concomitant]
     Active Substance: LEVOTHYROXINE
     Indication: Cardiac failure chronic
     Dosage: 150 MG/DAY, UNKNOWN FREQ.
     Route: 065
  22. PREDONINE [Concomitant]
     Active Substance: PREDNISOLONE
     Indication: Immunosuppressant drug therapy
     Dosage: UNK UNK, UNKNOWN FREQ.
     Route: 065

REACTIONS (1)
  - Nephropathy toxic [Recovered/Resolved]

NARRATIVE: CASE EVENT DATE: 20191112
